FAERS Safety Report 20120752 (Version 1)
Quarter: 2021Q4

REPORT INFORMATION
  Report Type: Report from Study
  Country: US (occurrence: US)
  Receive Date: 20211126
  Receipt Date: 20211126
  Transmission Date: 20220303
  Serious: Yes (Other)
  Sender: FDA-Public Use
  Company Number: US-UCBSA-2021054426

PATIENT
  Sex: Female
  Weight: 165 kg

DRUGS (1)
  1. CERTOLIZUMAB PEGOL [Suspect]
     Active Substance: CERTOLIZUMAB PEGOL
     Indication: Psoriasis
     Dosage: UNK
     Dates: start: 2016, end: 202107

REACTIONS (5)
  - Surgery [Not Recovered/Not Resolved]
  - Shoulder arthroplasty [Recovered/Resolved]
  - Feeling abnormal [Not Recovered/Not Resolved]
  - Post procedural complication [Unknown]
  - Product dose omission issue [Unknown]

NARRATIVE: CASE EVENT DATE: 20200101
